FAERS Safety Report 9690211 (Version 1)
Quarter: 2013Q4

REPORT INFORMATION
  Report Type: Spontaneous
  Country: US (occurrence: US)
  Receive Date: 20131115
  Receipt Date: 20131115
  Transmission Date: 20140711
  Serious: Yes (Other)
  Sender: FDA-Public Use
  Company Number: US-JNJFOC-20131105221

PATIENT
  Sex: Male
  Weight: 75.75 kg

DRUGS (3)
  1. REMICADE [Suspect]
     Indication: RHEUMATOID ARTHRITIS
     Dosage: 200 MGG EVERY COUPLE OF WEEKS
     Route: 042
     Dates: start: 20130718
  2. PREDNISONE [Concomitant]
     Indication: RHEUMATOID ARTHRITIS
     Route: 048
     Dates: start: 2007
  3. NAPROXEN [Concomitant]
     Indication: RHEUMATOID ARTHRITIS
     Route: 048
     Dates: start: 2003

REACTIONS (2)
  - Knee arthroplasty [Unknown]
  - Rash pruritic [Not Recovered/Not Resolved]
